FAERS Safety Report 4641302-3 (Version None)
Quarter: 2005Q2

REPORT INFORMATION
  Report Type: 
  Country: None (occurrence: None)
  Receive Date: 20050420
  Receipt Date: 20050420
  Transmission Date: 20051028
  Serious: Yes (Hospitalization)
  Sender: FDA-Public Use
  Company Number: None

PATIENT
  Sex: Male
  Weight: 85.2762 kg

DRUGS (2)
  1. NPH INSULIN [Suspect]
     Dosage: 30 UNITS BID
  2. REGULAR INSULIN [Suspect]
     Dosage: 20 UNITS Q AM AND 15 UNIT 2 PM

REACTIONS (2)
  - HYPOGLYCAEMIA [None]
  - SYNCOPE [None]
